FAERS Safety Report 8849035 (Version 4)
Quarter: 2012Q4

REPORT INFORMATION
  Report Type: 
  Country: JP (occurrence: JP)
  Receive Date: 20121019
  Receipt Date: 20121205
  Transmission Date: 20130627
  Serious: Yes (Other)
  Sender: FDA-Public Use
  Company Number: JP-JNJFOC-20121008452

PATIENT
  Age: 6 None
  Sex: Male

DRUGS (7)
  1. TRAMCET [Suspect]
     Indication: PAIN
     Dosage: 4 per 1 day
     Route: 048
  2. DEPAKENE-R [Concomitant]
     Indication: PRODUCT USED FOR UNKNOWN INDICATION
     Route: 048
  3. PAXIL [Concomitant]
     Indication: DEPRESSION
     Route: 048
  4. DIOVAN [Concomitant]
     Indication: PRODUCT USED FOR UNKNOWN INDICATION
     Route: 048
  5. TENORMIN [Concomitant]
     Indication: PRODUCT USED FOR UNKNOWN INDICATION
     Route: 048
  6. MYSLEE [Concomitant]
     Indication: INSOMNIA
     Route: 048
  7. LOXONIN [Concomitant]
     Indication: PRODUCT USED FOR UNKNOWN INDICATION
     Route: 048

REACTIONS (3)
  - Convulsion [Recovered/Resolved]
  - Epilepsy [Recovered/Resolved]
  - Syncope [Recovered/Resolved]
